FAERS Safety Report 6346244-3 (Version None)
Quarter: 2009Q3

REPORT INFORMATION
  Report Type: 
  Country: None (occurrence: None)
  Receive Date: 20090909
  Receipt Date: 20090902
  Transmission Date: 20100115
  Serious: Yes (Other)
  Sender: FDA-Public Use
  Company Number: PHHY2008DE33414

PATIENT
  Sex: Male

DRUGS (1)
  1. LEPONEX [Suspect]
     Route: 048

REACTIONS (1)
  - OVERDOSE [None]
